FAERS Safety Report 7080892-0 (Version None)
Quarter: 2010Q4

REPORT INFORMATION
  Report Type: 
  Country: None (occurrence: None)
  Receive Date: 20101103
  Receipt Date: 20090917
  Transmission Date: 20110411
  Serious: Yes (Hospitalization)
  Sender: FDA-Public Use
  Company Number: DE-SANOFI-AVENTIS-200915564EU

PATIENT
  Age: 63 Year
  Sex: Female
  Weight: 98 kg

DRUGS (10)
  1. FUROSEMIDE [Suspect]
     Dosage: DOSE AS USED: UNK
     Route: 048
     Dates: start: 20050508
  2. INVESTIGATIONAL DRUG [Concomitant]
     Dosage: DOSE AS USED: UNK
     Dates: start: 20071213, end: 20100107
  3. ACETYLSALICYLIC ACID [Concomitant]
     Dosage: DOSE AS USED: UNK
     Dates: start: 20010518
  4. BISOPROLOL [Concomitant]
     Dosage: DOSE AS USED: UNK
     Dates: start: 20071110
  5. DIGITOXIN [Concomitant]
     Dosage: DOSE AS USED: UNK
     Dates: start: 20010518
  6. SIMVASTATIN [Concomitant]
     Dosage: DOSE AS USED: UNK
     Dates: start: 20030308
  7. OMEPRAZOLE [Concomitant]
     Dosage: DOSE AS USED: UNK
     Dates: start: 20071031
  8. INSULIN [Concomitant]
     Dosage: DOSE AS USED: UNK
     Dates: start: 20010518
  9. GABAPENTIN [Concomitant]
     Dosage: DOSE AS USED: UNK
     Dates: start: 20050101
  10. NEUROTRAT [Concomitant]
     Dosage: DOSE AS USED: UNK
     Dates: start: 20020101

REACTIONS (1)
  - DEHYDRATION [None]
